FAERS Safety Report 7032780-3 (Version None)
Quarter: 2010Q4

REPORT INFORMATION
  Report Type: 
  Country: None (occurrence: None)
  Receive Date: 20101007
  Receipt Date: 20100927
  Transmission Date: 20110411
  Serious: Yes (Other)
  Sender: FDA-Public Use
  Company Number: US-PFIZER INC-2010112007

PATIENT
  Sex: Female
  Weight: 72.562 kg

DRUGS (12)
  1. GEODON [Suspect]
     Indication: BIPOLAR I DISORDER
     Dosage: 80 MG, 1X/DAY AT BEDTIME
     Route: 048
     Dates: end: 20100729
  2. GEODON [Suspect]
     Indication: PSYCHOTIC DISORDER
  3. GEODON [Suspect]
     Indication: OBSESSIVE-COMPULSIVE DISORDER
  4. LITHIUM CARBONATE [Suspect]
     Dosage: UNIT DOSE: 600;
  5. ADDERALL XR 10 [Suspect]
     Dosage: UNIT DOSE: 20;
  6. EFFEXOR [Concomitant]
     Dosage: UNIT DOSE: 150;
  7. LAMICTAL [Concomitant]
     Dosage: UNIT DOSE: 100;
  8. GLIMEPIRIDE [Concomitant]
     Dosage: UNK
  9. LEVOTHYROXINE SODIUM [Concomitant]
     Dosage: UNK
  10. CRESTOR [Concomitant]
     Dosage: UNK
  11. METFORMIN [Concomitant]
     Dosage: UNK
  12. VITAMIN E [Concomitant]
     Dosage: 400 IU, 4X/DAY

REACTIONS (1)
  - TARDIVE DYSKINESIA [None]
